FAERS Safety Report 5369218-8 (Version None)
Quarter: 2007Q2

REPORT INFORMATION
  Report Type: 
  Country: None (occurrence: None)
  Receive Date: 20070625
  Receipt Date: 20070614
  Transmission Date: 20071010
  Serious: Yes (Hospitalization)
  Sender: FDA-Public Use
  Company Number: JP-ROCHE-499449

PATIENT
  Age: 11 Year
  Sex: Male
  Weight: 34 kg

DRUGS (6)
  1. TAMIFLU [Suspect]
     Dosage: FORM: DRY SYRUP.
     Route: 048
     Dates: start: 20070220, end: 20070220
  2. TAMIFLU [Suspect]
     Route: 048
     Dates: start: 20070221, end: 20070224
  3. TAMIFLU [Suspect]
     Route: 048
     Dates: start: 20070225, end: 20070225
  4. HOKUNALIN [Concomitant]
     Dosage: DOSE FORM: TAPE.
     Route: 061
     Dates: start: 20070220, end: 20070225
  5. ANHIBA [Concomitant]
     Route: 054
     Dates: start: 20070220
  6. GENERIC UNKNOWN [Concomitant]
     Dosage: DRUG REPORTED AS PHYSIO 140.
     Route: 041
     Dates: start: 20070221, end: 20070221

REACTIONS (2)
  - DELIRIUM [None]
  - PERIPHERAL VASCULAR DISORDER [None]
